FAERS Safety Report 6965976-7 (Version None)
Quarter: 2010Q3

REPORT INFORMATION
  Report Type: 
  Country: None (occurrence: None)
  Receive Date: 20100903
  Receipt Date: 20100824
  Transmission Date: 20110219
  Serious: Yes (Other)
  Sender: FDA-Public Use
  Company Number: US-JNJFOC-20100901084

PATIENT
  Sex: Female
  Weight: 70.31 kg

DRUGS (10)
  1. EXTRA STRENGTH TYLENOL [Suspect]
  2. EXTRA STRENGTH TYLENOL [Suspect]
     Indication: OSTEOARTHRITIS
  3. ATIVAN [Concomitant]
  4. SEROQUEL [Concomitant]
  5. DIOVAN [Concomitant]
  6. TOPROL-XL [Concomitant]
  7. KLONOPIN [Concomitant]
  8. LEXAPRO [Concomitant]
  9. THEO-DUR [Concomitant]
  10. KEPPRA [Concomitant]

REACTIONS (2)
  - LIVER FUNCTION TEST ABNORMAL [None]
  - PRESYNCOPE [None]
